FAERS Safety Report 16864348 (Version 1)
Quarter: 2019Q3

REPORT INFORMATION
  Report Type: Report from Study
  Country: None (occurrence: CO)
  Receive Date: 20190928
  Receipt Date: 20190928
  Transmission Date: 20191005
  Serious: Yes (Other)
  Sender: FDA-Public Use
  Company Number: CO-ABBVIE-19K-036-2941567-00

PATIENT
  Age: 52 Year
  Sex: Female
  Weight: 69 kg

DRUGS (2)
  1. HUMIRA [Suspect]
     Active Substance: ADALIMUMAB
     Indication: PSORIASIS
     Route: 058
     Dates: start: 20120424
  2. HUMIRA [Suspect]
     Active Substance: ADALIMUMAB
     Indication: PSORIASIS
     Route: 058
     Dates: end: 20190905

REACTIONS (11)
  - Fall [Unknown]
  - Peripheral swelling [Unknown]
  - Fall [Recovered/Resolved]
  - Anxiety [Unknown]
  - Ankle fracture [Recovering/Resolving]
  - Joint injury [Unknown]
  - Stress [Recovering/Resolving]
  - Psoriasis [Recovering/Resolving]
  - Limb injury [Unknown]
  - Inflammation [Recovering/Resolving]
  - Walking aid user [Unknown]

NARRATIVE: CASE EVENT DATE: 201909
